FAERS Safety Report 14962866 (Version 1)
Quarter: 2018Q2

REPORT INFORMATION
  Report Type: Spontaneous
  Country: IT (occurrence: IT)
  Receive Date: 20180601
  Receipt Date: 20180601
  Transmission Date: 20180711
  Serious: Yes (Life-Threatening, Hospitalization)
  Sender: FDA-Public Use
  Company Number: PHHY2018IT011869

PATIENT
  Weight: 2.03 kg

DRUGS (3)
  1. PACLITAXEL. [Suspect]
     Active Substance: PACLITAXEL
     Indication: FOETAL EXPOSURE DURING PREGNANCY
     Dosage: 175 MG/M2
     Route: 064
  2. CISPLATIN. [Suspect]
     Active Substance: CISPLATIN
     Indication: FOETAL EXPOSURE DURING PREGNANCY
     Dosage: 75 MG/M2, Q3W
     Route: 064
  3. BETAMETHASONE. [Suspect]
     Active Substance: BETAMETHASONE
     Indication: FOETAL EXPOSURE DURING PREGNANCY
     Dosage: 12 MG, QD
     Route: 064

REACTIONS (2)
  - Premature baby [Unknown]
  - Foetal exposure during pregnancy [Unknown]
